FAERS Safety Report 7459344-1 (Version None)
Quarter: 2011Q2

REPORT INFORMATION
  Report Type: 
  Country: None (occurrence: None)
  Receive Date: 20110505
  Receipt Date: 20110503
  Transmission Date: 20111010
  Serious: No
  Sender: FDA-Public Use
  Company Number: US-PFIZER INC-2011095060

PATIENT
  Sex: Female
  Weight: 97.5 kg

DRUGS (5)
  1. TRAZODONE [Concomitant]
     Indication: SLEEP DISORDER
     Dosage: 75 MG, DAILY
  2. PRISTIQ [Suspect]
     Indication: DEPRESSION
     Dosage: 50 MG, 1X/DAY
     Route: 048
     Dates: start: 20110401, end: 20110502
  3. INSULIN DETEMIR [Concomitant]
     Indication: DIABETES MELLITUS
     Dosage: 8 MG, DAILY
  4. METFORMIN [Concomitant]
     Indication: DIABETES MELLITUS
     Dosage: 500 MG, DAILY
  5. DUETACT [Concomitant]
     Indication: DIABETES MELLITUS
     Dosage: 20/2 MG DAILY
     Route: 048

REACTIONS (2)
  - FEELING ABNORMAL [None]
  - MALAISE [None]
